FAERS Safety Report 10597542 (Version 6)
Quarter: 2015Q1

REPORT INFORMATION
  Report Type: Spontaneous
  Country: US (occurrence: US)
  Receive Date: 20141121
  Receipt Date: 20150224
  Transmission Date: 20150720
  Serious: Yes (Hospitalization, Other)
  Sender: FDA-Public Use
  Company Number: US-AMGEN-USASP2014089493

PATIENT
  Age: 57 Year
  Sex: Male
  Weight: 123 kg

DRUGS (7)
  1. PHOSLO [Concomitant]
     Active Substance: CALCIUM ACETATE
     Dosage: 667 MG, 2 CAPSULES THREE TIMES A DAY
     Route: 048
  2. EPOGEN [Suspect]
     Active Substance: ERYTHROPOIETIN
     Indication: CHRONIC KIDNEY DISEASE
  3. EPOGEN [Suspect]
     Active Substance: ERYTHROPOIETIN
     Indication: NEPHROGENIC ANAEMIA
     Dosage: 20000 UNIT, 3 TIMES/WK
     Route: 042
     Dates: start: 20080327, end: 20150107
  4. PHOSLO [Concomitant]
     Active Substance: CALCIUM ACETATE
     Dosage: 667 MG, 3 CAPSULE THREE TIMES A
     Route: 048
  5. DOCUSATE SODIUM. [Concomitant]
     Active Substance: DOCUSATE SODIUM
     Dosage: 100 MG, QD
     Route: 048
  6. KIONEX [Concomitant]
     Active Substance: SODIUM POLYSTYRENE SULFONATE
     Dosage: 15 GRAM/60 ML
     Route: 048
  7. LEVOTHYROXINE [Concomitant]
     Active Substance: LEVOTHYROXINE
     Dosage: 75 MCG, 1 TABLET ONCE A DAY
     Route: 048

REACTIONS (6)
  - Drug ineffective [Unknown]
  - Anti-erythropoietin antibody positive [Unknown]
  - Blood albumin decreased [Unknown]
  - Haemoglobin decreased [Not Recovered/Not Resolved]
  - Splenic rupture [Unknown]
  - Kidney infection [Unknown]

NARRATIVE: CASE EVENT DATE: 20141203
